FAERS Safety Report 4885394-5 (Version None)
Quarter: 2005Q4

REPORT INFORMATION
  Report Type: 
  Country: None (occurrence: None)
  Receive Date: 20051222
  Receipt Date: 20051110
  Transmission Date: 20060501
  Serious: No
  Sender: FDA-Public Use
  Company Number: SP00728

PATIENT
  Age: 42 Year
  Sex: Female

DRUGS (2)
  1. XIFAXAN [Suspect]
     Indication: GASTROINTESTINAL DISORDER
     Dosage: 400MG/BID, ORAL
     Route: 048
     Dates: start: 20051107, end: 20051107
  2. XIFAXAN [Suspect]
     Indication: OVERGROWTH BACTERIAL
     Dosage: 400MG/BID, ORAL
     Route: 048
     Dates: start: 20051107, end: 20051107

REACTIONS (3)
  - PARAESTHESIA ORAL [None]
  - RASH [None]
  - SWELLING FACE [None]
